FAERS Safety Report 6291633-9 (Version None)
Quarter: 2009Q3

REPORT INFORMATION
  Report Type: 
  Country: None (occurrence: None)
  Receive Date: 20090730
  Receipt Date: 20090730
  Transmission Date: 20100115
  Serious: Yes (Life-Threatening, Hospitalization)
  Sender: FDA-Public Use
  Company Number: None

PATIENT
  Age: 53 Year
  Sex: Male
  Weight: 77.1115 kg

DRUGS (1)
  1. VYTORIN [Suspect]
     Indication: PROSTATE CANCER STAGE III
     Dosage: 1 PILL, DAILY, PO
     Route: 048
     Dates: start: 20040831, end: 20060401

REACTIONS (1)
  - PROSTATE CANCER METASTATIC [None]
